FAERS Safety Report 25231965 (Version 1)
Quarter: 2025Q2

REPORT INFORMATION
  Report Type: Spontaneous
  Country: FR (occurrence: FR)
  Receive Date: 20250423
  Receipt Date: 20250423
  Transmission Date: 20250717
  Serious: Yes (Hospitalization, Other)
  Sender: PFIZER
  Company Number: None

PATIENT
  Age: 13 Year
  Sex: Female
  Weight: 44 kg

DRUGS (7)
  1. AZITHROMYCIN [Suspect]
     Active Substance: AZITHROMYCIN
     Indication: Chlamydial infection
     Dosage: 500 MG, DAILY
     Route: 048
     Dates: start: 202501, end: 20250201
  2. METHOTREXATE SODIUM [Suspect]
     Active Substance: METHOTREXATE SODIUM
     Indication: Osteosarcoma metastatic
     Route: 042
     Dates: start: 20250103, end: 20250103
  3. ETOPOSIDE [Suspect]
     Active Substance: ETOPOSIDE
     Indication: Osteosarcoma metastatic
     Route: 042
     Dates: start: 20250117, end: 20250117
  4. IFOSFAMIDE [Suspect]
     Active Substance: IFOSFAMIDE
     Indication: Osteosarcoma metastatic
     Route: 042
     Dates: start: 20250117, end: 20250117
  5. CIPROFLOXACIN [Suspect]
     Active Substance: CIPROFLOXACIN
     Indication: Chlamydial infection
     Dosage: 1500 MG, DAILY
     Route: 048
     Dates: start: 202501
  6. AMOXICILLIN [Suspect]
     Active Substance: AMOXICILLIN
     Indication: Chlamydial infection
     Dosage: 3 G, DAILY
     Route: 048
     Dates: start: 202501, end: 20250205
  7. CEFEPIME [Suspect]
     Active Substance: CEFEPIME HYDROCHLORIDE
     Indication: Escherichia infection
     Route: 042
     Dates: start: 202501, end: 202501

REACTIONS (1)
  - Henoch-Schonlein purpura [Not Recovered/Not Resolved]

NARRATIVE: CASE EVENT DATE: 20250203
